FAERS Safety Report 4558652-1 (Version None)
Quarter: 2005Q1

REPORT INFORMATION
  Report Type: 
  Country: None (occurrence: None)
  Receive Date: 20050121
  Receipt Date: 20050108
  Transmission Date: 20050727
  Serious: Yes (Other)
  Sender: FDA-Public Use
  Company Number: BE-JNJFOC-20041104056

PATIENT
  Age: 55 Year
  Sex: Female

DRUGS (1)
  1. PROPULSID [Suspect]
     Route: 049
     Dates: start: 20031107, end: 20040611

REACTIONS (3)
  - DRUG INEFFECTIVE [None]
  - ELECTROCARDIOGRAM QT PROLONGED [None]
  - GASTRIC ULCER [None]
